FAERS Safety Report 19907454 (Version 2)
Quarter: 2022Q1

REPORT INFORMATION
  Report Type: Spontaneous
  Country: CA (occurrence: CA)
  Receive Date: 20210930
  Receipt Date: 20220204
  Transmission Date: 20220424
  Serious: Yes (Hospitalization, Disabling, Other)
  Sender: FDA-Public Use
  Company Number: CA-GILEAD-2021-0550307

PATIENT
  Age: 44 Year
  Sex: Female
  Weight: 72 kg

DRUGS (1)
  1. YESCARTA [Suspect]
     Active Substance: AXICABTAGENE CILOLEUCEL
     Indication: Primary mediastinal large B-cell lymphoma stage II
     Dosage: UNK
     Route: 042
     Dates: start: 20210907, end: 20210907

REACTIONS (4)
  - Brain oedema [Not Recovered/Not Resolved]
  - Myelitis [Not Recovered/Not Resolved]
  - Neurotoxicity [Unknown]
  - Cytokine release syndrome [Recovered/Resolved]

NARRATIVE: CASE EVENT DATE: 20210907
